FAERS Safety Report 10011604 (Version 2)
Quarter: 2014Q2

REPORT INFORMATION
  Report Type: Spontaneous
  Country: US (occurrence: US)
  Receive Date: 20140314
  Receipt Date: 20140610
  Transmission Date: 20141212
  Serious: No
  Sender: FDA-Public Use
  Company Number: US-009507513-1403USA004598

PATIENT
  Age: 25 Year
  Sex: Male
  Weight: 99.77 kg

DRUGS (1)
  1. CLARITIN-D-12 [Suspect]
     Indication: HYPERSENSITIVITY
     Dosage: 5 MG, QD
     Route: 048
     Dates: start: 201401, end: 201402

REACTIONS (2)
  - Underdose [Unknown]
  - Drug ineffective [Unknown]
